FAERS Safety Report 13067673 (Version 1)
Quarter: 2016Q4

REPORT INFORMATION
  Report Type: Report from Study
  Country: US (occurrence: US)
  Receive Date: 20161228
  Receipt Date: 20161228
  Transmission Date: 20170207
  Serious: Yes (Other)
  Sender: FDA-Public Use
  Company Number: US-AEGERION PHARMACEUTICAL INC-AEGR002880

PATIENT
  Age: 53 Year
  Sex: Male

DRUGS (17)
  1. ALFUZOSIN [Concomitant]
     Active Substance: ALFUZOSIN
     Indication: BENIGN PROSTATIC HYPERPLASIA
     Dosage: 10 MG, QD
     Route: 048
     Dates: start: 20141126
  2. AMLODIPINE [Concomitant]
     Active Substance: AMLODIPINE BESYLATE
     Indication: HYPERTENSION
     Dosage: 10 MG, QD
     Route: 048
  3. LISINOPRIL. [Concomitant]
     Active Substance: LISINOPRIL
     Indication: HYPERTENSION
     Dosage: 10 MG, QD
     Route: 048
     Dates: start: 20140605
  4. PITAVASTATIN [Concomitant]
     Active Substance: PITAVASTATIN
     Indication: HYPERCHOLESTEROLAEMIA
     Dosage: 2 MG, QW
     Route: 048
     Dates: start: 201401, end: 2014
  5. EZETIMIBE. [Concomitant]
     Active Substance: EZETIMIBE
     Indication: HYPERCHOLESTEROLAEMIA
     Dosage: 10 MG, QD
     Route: 048
     Dates: start: 20141110
  6. FAMOTIDINE. [Concomitant]
     Active Substance: FAMOTIDINE
     Indication: DYSPEPSIA
     Dosage: 20 MG, BID
     Route: 048
  7. ASPIRIN. [Concomitant]
     Active Substance: ASPIRIN
     Indication: ANTICOAGULANT THERAPY
     Dosage: 81 MG, QD
     Route: 048
     Dates: start: 20100907
  8. CLOPIDOGREL [Concomitant]
     Active Substance: CLOPIDOGREL BISULFATE
     Indication: THROMBOSIS PROPHYLAXIS
     Dosage: 75 MG, QD
     Route: 048
     Dates: start: 200508
  9. OMEGA 3 [Concomitant]
     Active Substance: OMEGA-3 FATTY ACIDS
     Indication: SUPPLEMENTATION THERAPY
     Dosage: 2000 MG, BID
     Route: 048
  10. JUXTAPID [Suspect]
     Active Substance: LOMITAPIDE MESYLATE
     Indication: DYSLIPIDAEMIA
     Dosage: 5 MG, UNK
     Route: 048
     Dates: start: 20131023, end: 20131127
  11. MULTIVITAMIN [Concomitant]
     Active Substance: VITAMINS
     Indication: SUPPLEMENTATION THERAPY
     Dosage: 1 CAPSULE, QD
     Route: 048
  12. PITAVASTATIN [Concomitant]
     Active Substance: PITAVASTATIN
     Indication: HYPERLIPIDAEMIA
     Dosage: 2 MG, QOD
     Route: 048
     Dates: start: 20150515
  13. ALPHA LIPOIC ACID [Concomitant]
     Active Substance: .ALPHA.-LIPOIC ACID
     Indication: SUPPLEMENTATION THERAPY
  14. JUXTAPID [Suspect]
     Active Substance: LOMITAPIDE MESYLATE
     Indication: DRUG INTOLERANCE
     Dosage: 5 MG, QOD
     Route: 048
     Dates: start: 20131128, end: 20150605
  15. BETA SITOSTEROL [Concomitant]
     Indication: SUPPLEMENTATION THERAPY
  16. METFORMIN [Concomitant]
     Active Substance: METFORMIN HYDROCHLORIDE
     Indication: DIABETES MELLITUS
     Dosage: 1000 MG, QD
     Route: 048
     Dates: start: 2013, end: 20150616
  17. ONDANSETRON [Concomitant]
     Active Substance: ONDANSETRON
     Indication: NAUSEA
     Dosage: 4 MG, PRN
     Route: 048
     Dates: start: 20150531

REACTIONS (10)
  - Alanine aminotransferase increased [Unknown]
  - Blood triglycerides increased [Not Recovered/Not Resolved]
  - Blood glucose increased [Not Recovered/Not Resolved]
  - White blood cell count increased [Not Recovered/Not Resolved]
  - Blood cholesterol increased [Not Recovered/Not Resolved]
  - Chest pain [Recovered/Resolved]
  - Off label use [Recovered/Resolved]
  - Therapy cessation [Not Recovered/Not Resolved]
  - Glycosylated haemoglobin increased [Unknown]
  - Inappropriate schedule of drug administration [Recovered/Resolved]

NARRATIVE: CASE EVENT DATE: 20131023
